FAERS Safety Report 6526714-5 (Version None)
Quarter: 2009Q4

REPORT INFORMATION
  Report Type: 
  Country: None (occurrence: None)
  Receive Date: 20091214
  Receipt Date: 20091014
  Transmission Date: 20100525
  Serious: Yes (Other)
  Sender: FDA-Public Use
  Company Number: 662598

PATIENT
  Age: 25 Year
  Sex: Female

DRUGS (4)
  1. PEGASYS [Suspect]
     Indication: HEPATITIS C
     Dosage: 180 UG 1 PER WEEK
     Dates: start: 20090925
  2. RIBAVIRIN [Suspect]
     Indication: HEPATITIS C
     Dosage: 20 DOSE FORM
     Dates: start: 20090925, end: 20091009
  3. LAMICTAL [Suspect]
     Indication: DRUG USE FOR UNKNOWN INDICATION
     Dosage: 20 DOSE FORM
     Dates: start: 20091009, end: 20091009
  4. LEXAPRO [Concomitant]

REACTIONS (3)
  - INSOMNIA [None]
  - SUICIDE ATTEMPT [None]
  - VOMITING [None]
